FAERS Safety Report 5879917-7 (Version None)
Quarter: 2008Q3

REPORT INFORMATION
  Report Type: 
  Country: None (occurrence: None)
  Receive Date: 20080912
  Receipt Date: 20080902
  Transmission Date: 20090109
  Serious: Yes (Other)
  Sender: FDA-Public Use
  Company Number: US-ELI_LILLY_AND_COMPANY-US200808004603

PATIENT
  Age: 55 Year
  Sex: Female

DRUGS (11)
  1. BYETTA [Suspect]
     Indication: DIABETES MELLITUS
     Dosage: UNK, UNKNOWN
     Route: 065
     Dates: start: 20070726, end: 20080101
  2. TARKA [Concomitant]
     Dosage: 960 MG, DAILY (1/D)
     Route: 048
  3. ZOCOR [Concomitant]
     Dosage: 40 MG, DAILY (1/D)
     Route: 048
  4. LEXAPRO [Concomitant]
     Dosage: 10 MG, DAILY (1/D)
     Route: 048
  5. BACLOFEN [Concomitant]
     Dosage: 10 MG, DAILY (1/D)
     Route: 048
  6. HYDROCODONE BITARTRATE + ACETAMINOPHEN [Concomitant]
     Dosage: 750 MG, AS NEEDED
     Route: 065
  7. CLONAZEPAM [Concomitant]
     Dosage: 0.5 MG, AS NEEDED
     Route: 065
  8. CYCLOBENZAPRINE HCL [Concomitant]
     Dosage: 10 MG, AS NEEDED
     Route: 065
  9. INTERFERON BETA-1A [Concomitant]
     Dosage: 44 UG, 3/W
     Route: 065
  10. LISINOPRIL [Concomitant]
     Dosage: 40 MG, DAILY (1/D)
     Route: 048
  11. AMARYL [Concomitant]
     Dosage: 4 MG, 2/D
     Route: 048

REACTIONS (1)
  - PANCREATITIS [None]
